FAERS Safety Report 7472290-2 (Version None)
Quarter: 2011Q2

REPORT INFORMATION
  Report Type: 
  Country: None (occurrence: None)
  Receive Date: 20110511
  Receipt Date: 20110422
  Transmission Date: 20111010
  Serious: No
  Sender: FDA-Public Use
  Company Number: US-B.I. PHARMACEUTICALS,INC./RIDGEFIELD-2011-BP-08813BP

PATIENT
  Age: 79 Year
  Sex: Male

DRUGS (5)
  1. PRADAXA [Suspect]
     Indication: ATRIAL FIBRILLATION
     Dosage: 300 MG
     Route: 048
     Dates: start: 20101201
  2. CALCIUM [Concomitant]
     Indication: PROPHYLAXIS
  3. UROXATRAL [Concomitant]
     Indication: BENIGN PROSTATIC HYPERPLASIA
  4. ZOCOR [Concomitant]
     Indication: BLOOD CHOLESTEROL INCREASED
  5. BENICAR [Concomitant]
     Indication: HYPERTENSION

REACTIONS (1)
  - SOMNOLENCE [None]
